FAERS Safety Report 16821283 (Version 1)
Quarter: 2019Q3

REPORT INFORMATION
  Report Type: Spontaneous
  Country: US (occurrence: US)
  Receive Date: 20190726
  Receipt Date: 20190726
  Transmission Date: 20191005
  Serious: Yes (Death)
  Sender: FDA-Public Use
  Company Number: None

PATIENT
  Age: 67 Year
  Sex: Female
  Weight: 106.59 kg

DRUGS (14)
  1. MORPHINE [Concomitant]
     Active Substance: MORPHINE
  2. LORAZEPAM. [Concomitant]
     Active Substance: LORAZEPAM
  3. SPIRONOLACTONE. [Concomitant]
     Active Substance: SPIRONOLACTONE
  4. SERTRALINE [Concomitant]
     Active Substance: SERTRALINE HYDROCHLORIDE
  5. NINLARO [Suspect]
     Active Substance: IXAZOMIB CITRATE
     Indication: PLASMA CELL MYELOMA
     Route: 048
     Dates: start: 20190218
  6. DEXAMETHASONE. [Concomitant]
     Active Substance: DEXAMETHASONE
  7. WARFARIN [Concomitant]
     Active Substance: WARFARIN
  8. VITAMIN D [Concomitant]
     Active Substance: VITAMIN D NOS
  9. MILK OF MAGNEESIA [Concomitant]
  10. IBUPROFEN. [Concomitant]
     Active Substance: IBUPROFEN
  11. POMALYST [Concomitant]
     Active Substance: POMALIDOMIDE
  12. ALBTUEROL [Concomitant]
  13. OXYCODONE AND ACETAMINOPHEN [Concomitant]
     Active Substance: ACETAMINOPHEN\OXYCODONE HYDROCHLORIDE
  14. POTASSIUM CL [Concomitant]
     Active Substance: POTASSIUM CHLORIDE

REACTIONS (1)
  - Death [None]

NARRATIVE: CASE EVENT DATE: 20190723
